FAERS Safety Report 17306145 (Version 2)
Quarter: 2020Q1

REPORT INFORMATION
  Report Type: Spontaneous
  Country: AT (occurrence: AT)
  Receive Date: 20200123
  Receipt Date: 20200204
  Transmission Date: 20200409
  Serious: Yes (Other)
  Sender: FDA-Public Use
  Company Number: AT-TEVA-2020-AT-1171963

PATIENT
  Sex: Female

DRUGS (6)
  1. EUTHYROX [Suspect]
     Active Substance: LEVOTHYROXINE SODIUM
     Indication: PRODUCT USED FOR UNKNOWN INDICATION
     Dosage: UNK
     Route: 065
  2. AMLODIPINE [Suspect]
     Active Substance: AMLODIPINE BESYLATE
     Indication: HYPERTENSION
     Dosage: UNK
     Route: 065
  3. RASILEZ [Suspect]
     Active Substance: ALISKIREN
     Indication: PRODUCT USED FOR UNKNOWN INDICATION
     Dosage: 150 MG
     Route: 065
  4. RASILEZ [Suspect]
     Active Substance: ALISKIREN
     Dosage: 300 MG
     Route: 065
  5. DEFLAMAT [Concomitant]
     Active Substance: DICLOFENAC SODIUM
     Indication: ANALGESIC THERAPY
     Dosage: 100 MG
     Route: 065
  6. ZOLDEM [Concomitant]
     Active Substance: ZOLPIDEM TARTRATE
     Indication: SLEEP DISORDER
     Dosage: UNK,(? OR ? PER DAY )
     Route: 065

REACTIONS (12)
  - Lower limb fracture [Unknown]
  - Drug intolerance [Unknown]
  - Musculoskeletal disorder [Unknown]
  - Myalgia [Unknown]
  - Muscular weakness [Unknown]
  - Pain in extremity [Unknown]
  - Skin burning sensation [Unknown]
  - Hypertension [Unknown]
  - Dizziness [Unknown]
  - Muscle spasms [Unknown]
  - Insomnia [Unknown]
  - Drug ineffective [Unknown]
